FAERS Safety Report 15375919 (Version 3)
Quarter: 2019Q1

REPORT INFORMATION
  Report Type: Spontaneous
  Country: FR (occurrence: FR)
  Receive Date: 20180912
  Receipt Date: 20190228
  Transmission Date: 20190417
  Serious: Yes (Other)
  Sender: FDA-Public Use
  Company Number: FR-GILEAD-2018-0361720

PATIENT
  Sex: Female

DRUGS (3)
  1. NEVIRAPINE. [Suspect]
     Active Substance: NEVIRAPINE
     Indication: HIV INFECTION
     Dosage: 1.5 ML, QD
     Route: 048
     Dates: start: 20151110, end: 20160721
  2. RALTEGRAVIR. [Suspect]
     Active Substance: RALTEGRAVIR
     Indication: HIV INFECTION
     Dosage: 400 MG, QD
     Route: 048
     Dates: start: 20151110
  3. VIREAD [Suspect]
     Active Substance: TENOFOVIR DISOPROXIL FUMARATE
     Indication: HIV INFECTION
     Dosage: 1 DF, QD
     Route: 065
     Dates: start: 20151110, end: 20160721

REACTIONS (1)
  - Maternal exposure during pregnancy [Not Recovered/Not Resolved]
